FAERS Safety Report 19271974 (Version 2)
Quarter: 2024Q1

REPORT INFORMATION
  Report Type: Spontaneous
  Country: US (occurrence: US)
  Receive Date: 20210519
  Receipt Date: 20240201
  Transmission Date: 20240409
  Serious: No
  Sender: FDA-Public Use
  Company Number: US-NOVEN PHARMACEUTICALS, INC.-2021US001547

PATIENT
  Sex: Female

DRUGS (2)
  1. DAYTRANA [Suspect]
     Active Substance: METHYLPHENIDATE
     Indication: Attention deficit hyperactivity disorder
     Dosage: 15 MG/ 9 HOURS, UNK
     Route: 062
     Dates: start: 20210219, end: 20210219
  2. DAYTRANA [Suspect]
     Active Substance: METHYLPHENIDATE
     Indication: Autism spectrum disorder
     Dosage: 10 MG/ 9 HOURS, UNK
     Route: 062
     Dates: start: 202008

REACTIONS (5)
  - Unevaluable event [Unknown]
  - Incorrect dose administered [Not Recovered/Not Resolved]
  - Device adhesion issue [Recovered/Resolved]
  - Device breakage [Recovered/Resolved]
  - Device difficult to use [Recovered/Resolved]

NARRATIVE: CASE EVENT DATE: 20210222
